FAERS Safety Report 21294462 (Version 2)
Quarter: 2022Q3

REPORT INFORMATION
  Report Type: Report from Study
  Country: DE (occurrence: DE)
  Receive Date: 20220905
  Receipt Date: 20220909
  Transmission Date: 20221027
  Serious: Yes (Hospitalization)
  Sender: FDA-Public Use
  Company Number: DE-EXELIXIS-XL18422055549

PATIENT

DRUGS (5)
  1. CABOZANTINIB [Suspect]
     Active Substance: CABOZANTINIB
     Indication: Adrenocortical carcinoma
     Dosage: 60 MG, QD
     Route: 048
     Dates: start: 20220111, end: 20220902
  2. LOPERAMIDE [Concomitant]
     Active Substance: LOPERAMIDE
  3. IBUPROFEN [Concomitant]
     Active Substance: IBUPROFEN
  4. POSTERICORT [Concomitant]
  5. MCP [Concomitant]
     Active Substance: METOCLOPRAMIDE HYDROCHLORIDE

REACTIONS (1)
  - Infection [Recovered/Resolved]

NARRATIVE: CASE EVENT DATE: 20220826
